FAERS Safety Report 12442314 (Version 1)
Quarter: 2016Q2

REPORT INFORMATION
  Report Type: Spontaneous
  Country: US (occurrence: US)
  Receive Date: 20160607
  Receipt Date: 20160607
  Transmission Date: 20160815
  Serious: No
  Sender: FDA-Public Use
  Company Number: US-WATSON-2015-18293

PATIENT
  Sex: Female

DRUGS (1)
  1. POTASSIUM CHLORIDE EXTENDED-RELEASE CAPSULES (ACTAVIS LABORATORIES FL) [Suspect]
     Active Substance: POTASSIUM CHLORIDE
     Indication: PRODUCT USED FOR UNKNOWN INDICATION
     Dosage: 10 MEQ, UNKNOWN
     Route: 065

REACTIONS (1)
  - Nausea [Unknown]
